FAERS Safety Report 10401422 (Version 1)
Quarter: 2014Q3

REPORT INFORMATION
  Report Type: Spontaneous
  Country: US (occurrence: None)
  Receive Date: 20140819
  Receipt Date: 20140819
  Transmission Date: 20150326
  Serious: Yes (Life-Threatening, Hospitalization)
  Sender: FDA-Public Use
  Company Number: None

PATIENT
  Age: 45 Year
  Sex: Female
  Weight: 71 kg

DRUGS (1)
  1. PHENDIMETRAZINE [Suspect]
     Active Substance: PHENDIMETRAZINE
     Indication: WEIGHT CONTROL
     Route: 048
     Dates: start: 20140201, end: 20140817

REACTIONS (4)
  - Rhabdomyolysis [None]
  - Delirium [None]
  - Troponin increased [None]
  - Hyperthermia [None]

NARRATIVE: CASE EVENT DATE: 20140817
